FAERS Safety Report 21403466 (Version 1)
Quarter: 2022Q4

REPORT INFORMATION
  Report Type: Spontaneous
  Country: US (occurrence: None)
  Receive Date: 20221001
  Receipt Date: 20221001
  Transmission Date: 20230113
  Serious: No
  Sender: FDA-Public Use
  Company Number: None

PATIENT
  Age: 52 Year
  Sex: Female
  Weight: 65.25 kg

DRUGS (1)
  1. ASTEPRO ALLERGY [Suspect]
     Active Substance: AZELASTINE HYDROCHLORIDE
     Indication: Multiple allergies
     Dosage: OTHER STRENGTH : MCG;?OTHER QUANTITY : 1 SPRAY(S);?FREQUENCY : TWICE A DAY;?
     Route: 055
     Dates: start: 20220929, end: 20220930

REACTIONS (4)
  - Dysphonia [None]
  - Oropharyngeal pain [None]
  - Pyrexia [None]
  - Influenza like illness [None]

NARRATIVE: CASE EVENT DATE: 20220929
